FAERS Safety Report 4817512-9 (Version None)
Quarter: 2005Q4

REPORT INFORMATION
  Report Type: 
  Country: None (occurrence: None)
  Receive Date: 20051031
  Receipt Date: 20051019
  Transmission Date: 20060501
  Serious: Yes (Other)
  Sender: FDA-Public Use
  Company Number: 2005145658

PATIENT
  Age: 72 Year
  Sex: Male

DRUGS (2)
  1. FRAGMIN [Suspect]
     Indication: DEEP VEIN THROMBOSIS
     Dosage: 18000 I.U. (1 IN 1 D), ORAL
     Route: 048
     Dates: start: 20040217, end: 20050601
  2. FRAGMIN [Suspect]
     Indication: EMBOLISM
     Dosage: 18000 I.U. (1 IN 1 D), ORAL
     Route: 048
     Dates: start: 20040217, end: 20050601

REACTIONS (3)
  - COMPRESSION FRACTURE [None]
  - HYPOCALCAEMIA [None]
  - SPINAL COMPRESSION FRACTURE [None]
